FAERS Safety Report 20566797 (Version 1)
Quarter: 2022Q1

REPORT INFORMATION
  Report Type: Report from Study
  Country: US (occurrence: US)
  Receive Date: 20220308
  Receipt Date: 20220308
  Transmission Date: 20220423
  Serious: Yes (Other)
  Sender: FDA-Public Use
  Company Number: US-PFIZER INC-202200334634

PATIENT
  Age: 68 Year

DRUGS (2)
  1. TEMSIROLIMUS [Suspect]
     Active Substance: TEMSIROLIMUS
     Indication: Ovarian cancer
     Dosage: CYCLIC (DAY 1, 8 15, 22 OF EACH CYCLE OVER 30 MIN, WEEKLY)
     Route: 042
  2. CEDIRANIB [Suspect]
     Active Substance: CEDIRANIB
     Indication: Ovarian cancer
     Dosage: UNK UNK, DAILY
     Route: 048

REACTIONS (3)
  - Hypertension [Unknown]
  - Oedema [Unknown]
  - Pain in extremity [Unknown]
